FAERS Safety Report 5602088-9 (Version None)
Quarter: 2008Q1

REPORT INFORMATION
  Report Type: 
  Country: None (occurrence: None)
  Receive Date: 20080125
  Receipt Date: 20080115
  Transmission Date: 20080703
  Serious: Yes (Hospitalization, Other)
  Sender: FDA-Public Use
  Company Number: US-BAYER-200712611BWH

PATIENT
  Age: 66 Year
  Sex: Female

DRUGS (10)
  1. NEXAVAR [Suspect]
     Indication: LUNG CANCER METASTATIC
     Dosage: TOTAL DAILY DOSE: 800 MG  UNIT DOSE: 200 MG
     Route: 048
     Dates: start: 20070601, end: 20070726
  2. GEMZAR [Suspect]
     Indication: LUNG CANCER METASTATIC
     Route: 042
     Dates: start: 20070601, end: 20070717
  3. DILTIAZEM HCL [Concomitant]
  4. VYTORIN [Concomitant]
  5. NEXIUM [Concomitant]
  6. ASPIRIN [Concomitant]
  7. ARIXTRA [Concomitant]
  8. FOLIC ACID [Concomitant]
  9. COMPAZINE [Concomitant]
  10. LUNESTA [Concomitant]

REACTIONS (5)
  - CEREBRAL INFARCTION [None]
  - DYSPNOEA [None]
  - HYPOXIA [None]
  - LUNG NEOPLASM MALIGNANT [None]
  - RESPIRATORY DISTRESS [None]
